FAERS Safety Report 8966508 (Version 1)
Quarter: 2012Q4

REPORT INFORMATION
  Report Type: 
  Country: GB (occurrence: GB)
  Receive Date: 20121214
  Receipt Date: 20121214
  Transmission Date: 20130627
  Serious: Yes (Other)
  Sender: FDA-Public Use
  Company Number: GB-TEVA-375238ISR

PATIENT
  Age: 72 Year
  Sex: Female
  Weight: 52 kg

DRUGS (1)
  1. ATORVASTATIN [Suspect]

REACTIONS (4)
  - Abdominal pain [Recovered/Resolved]
  - Nausea [Recovered/Resolved]
  - Headache [Recovered/Resolved]
  - Product substitution issue [Unknown]
